FAERS Safety Report 13847117 (Version 4)
Quarter: 2017Q3

REPORT INFORMATION
  Report Type: Report from Study
  Country: US (occurrence: US)
  Receive Date: 20170808
  Receipt Date: 20170915
  Transmission Date: 20171127
  Serious: Yes (Death, Hospitalization)
  Sender: FDA-Public Use
  Company Number: US-ACTELION-A-US2015-118109

PATIENT
  Age: 52 Year
  Sex: Female
  Weight: 117.91 kg

DRUGS (6)
  1. OPSUMIT [Suspect]
     Active Substance: MACITENTAN
     Dosage: UNK
     Route: 048
  2. OPSUMIT [Suspect]
     Active Substance: MACITENTAN
     Indication: PULMONARY HYPERTENSION
     Dosage: 10 MG, QD
     Route: 048
     Dates: start: 20150227
  3. TYVASO [Suspect]
     Active Substance: TREPROSTINIL
     Indication: PRODUCT USED FOR UNKNOWN INDICATION
     Dosage: 5 BREATHS PER TREATMENT
     Route: 055
  4. REMODULIN [Suspect]
     Active Substance: TREPROSTINIL
     Indication: PRODUCT USED FOR UNKNOWN INDICATION
     Dosage: 13.4 NG/KG, PER MIN
     Route: 065
  5. TYVASO [Suspect]
     Active Substance: TREPROSTINIL
     Dosage: 9 BREATHS PER TREATMENT
     Route: 055
  6. ADCIRCA [Concomitant]
     Active Substance: TADALAFIL

REACTIONS (36)
  - Sinus disorder [Unknown]
  - Muscle spasms [Not Recovered/Not Resolved]
  - Catheter site erythema [Recovering/Resolving]
  - Renal failure [Recovering/Resolving]
  - Weight increased [Unknown]
  - Spinal column injury [Unknown]
  - Abdominal distension [Unknown]
  - Loss of consciousness [Unknown]
  - Diarrhoea [Unknown]
  - Gastrointestinal haemorrhage [Unknown]
  - Fall [Unknown]
  - Cough [Unknown]
  - Infusion site pain [Not Recovered/Not Resolved]
  - Headache [Unknown]
  - Nausea [Unknown]
  - Death [Fatal]
  - Disease progression [Unknown]
  - Pain in extremity [Unknown]
  - Catheter site swelling [Recovering/Resolving]
  - Myalgia [Unknown]
  - Chest discomfort [Unknown]
  - Flushing [Unknown]
  - Feeling abnormal [Unknown]
  - Nasopharyngitis [Unknown]
  - Infusion site inflammation [Unknown]
  - Dehydration [Unknown]
  - Musculoskeletal chest pain [Unknown]
  - Infusion site erythema [Unknown]
  - Back injury [Unknown]
  - Dizziness [Unknown]
  - Abdominal pain upper [Unknown]
  - Blood pressure decreased [Unknown]
  - Syncope [Unknown]
  - Hypotension [Unknown]
  - Psychomotor hyperactivity [Unknown]
  - Oxygen saturation decreased [Unknown]

NARRATIVE: CASE EVENT DATE: 201707
